FAERS Safety Report 5154462-5 (Version None)
Quarter: 2006Q4

REPORT INFORMATION
  Report Type: 
  Country: None (occurrence: None)
  Receive Date: 20061120
  Receipt Date: 20061110
  Transmission Date: 20070319
  Serious: Yes (Other)
  Sender: FDA-Public Use
  Company Number: GB-ABBOTT-06P-167-0349993-00

PATIENT
  Age: 20 Year
  Sex: Female
  Weight: 65 kg

DRUGS (3)
  1. KALETRA [Suspect]
     Indication: HIV INFECTION
     Route: 048
     Dates: start: 20060906, end: 20061009
  2. LAMIVUDINE + ZIDOVUDINE [Concomitant]
     Indication: HIV INFECTION
     Route: 048
     Dates: start: 20060906
  3. FOLIC ACID [Concomitant]
     Indication: DRUG USE FOR UNKNOWN INDICATION
     Route: 048
     Dates: start: 20060601

REACTIONS (4)
  - GAIT DISTURBANCE [None]
  - PAIN [None]
  - SUBCUTANEOUS NODULE [None]
  - TENDERNESS [None]
